FAERS Safety Report 14354616 (Version 1)
Quarter: 2018Q1

REPORT INFORMATION
  Report Type: Spontaneous
  Country: US (occurrence: US)
  Receive Date: 20180105
  Receipt Date: 20180105
  Transmission Date: 20180509
  Serious: No
  Sender: FDA-Public Use
  Company Number: US-BAYER-2018-002213

PATIENT
  Age: 70 Year
  Sex: Female
  Weight: 76.96 kg

DRUGS (2)
  1. ALEVE [Suspect]
     Active Substance: NAPROXEN SODIUM
     Indication: PAIN
     Dosage: 2 TO 4 DF DAILY AS NEEDED
     Route: 048
  2. ALEVE TENS DEVICE DIRECT THERAPY UNIT [Suspect]
     Active Substance: DEVICE
     Indication: SCIATICA
     Dates: start: 2015

REACTIONS (3)
  - Therapeutic product effective for unapproved indication [Unknown]
  - Incorrect dose administered [Unknown]
  - Product prescribing issue [Unknown]
